FAERS Safety Report 20534953 (Version 5)
Quarter: 2024Q4

REPORT INFORMATION
  Report Type: Spontaneous
  Country: JP (occurrence: JP)
  Receive Date: 20220302
  Receipt Date: 20241118
  Transmission Date: 20250115
  Serious: Yes (Other)
  Sender: CELLTRION
  Company Number: JP-CELLTRION INC.-2020JP023939

PATIENT

DRUGS (10)
  1. INFLIXIMAB [Suspect]
     Active Substance: INFLIXIMAB
     Indication: Crohn^s disease
     Dosage: 355 MG (WEIGHT OF 71KG)
     Route: 041
     Dates: start: 20181107, end: 20181107
  2. INFLIXIMAB [Suspect]
     Active Substance: INFLIXIMAB
     Dosage: 355 MG (WEIGHT OF 71 KG)
     Route: 041
     Dates: start: 20190109, end: 20190109
  3. INFLIXIMAB [Suspect]
     Active Substance: INFLIXIMAB
     Dosage: 345 MG (WEIGHT OF 69 KG)
     Route: 041
     Dates: start: 20190313, end: 20190313
  4. INFLIXIMAB [Suspect]
     Active Substance: INFLIXIMAB
     Dosage: 345 MG (WEIGHT OF 69 KG)
     Route: 041
     Dates: start: 20190508, end: 20190508
  5. INFLIXIMAB [Suspect]
     Active Substance: INFLIXIMAB
     Dosage: 690 MG (WEIGHT OF 69KG)
     Route: 041
     Dates: start: 20191016, end: 20191016
  6. INFLIXIMAB [Suspect]
     Active Substance: INFLIXIMAB
     Dosage: 690 MG (WEIGHT OF 69 KG)
     Route: 041
     Dates: start: 20201110, end: 20201110
  7. INFLIXIMAB [Suspect]
     Active Substance: INFLIXIMAB
     Dosage: 710 MG (WEIGHT OF 70.8 KG)
     Route: 041
     Dates: start: 20211012, end: 20211012
  8. INFLIXIMAB [Suspect]
     Active Substance: INFLIXIMAB
     Dosage: 730 MG (WEIGHT OF 72.5 KG)
     Route: 041
     Dates: start: 20221108, end: 20221108
  9. INFLIXIMAB [Suspect]
     Active Substance: INFLIXIMAB
     Dosage: 740 MG (WEIGHT OF 73.3 KG)
     Route: 041
     Dates: start: 20231030, end: 20231030
  10. MESALAMINE [Concomitant]
     Active Substance: MESALAMINE
     Dosage: 2000 MILLIGRAM PER DAY
     Route: 048

REACTIONS (15)
  - Rectal polypectomy [Recovered/Resolved]
  - Large intestine polyp [Recovered/Resolved]
  - Abdominal discomfort [Recovered/Resolved]
  - Malaise [Recovered/Resolved]
  - Abdominal distension [Recovered/Resolved]
  - Abdominal pain upper [Recovered/Resolved]
  - Infusion related reaction [Unknown]
  - Urticaria [Unknown]
  - Abdominal pain [Recovered/Resolved]
  - Dizziness [Recovered/Resolved]
  - Influenza [Recovered/Resolved]
  - Intentional product use issue [Unknown]
  - Therapeutic product effect decreased [Unknown]
  - Therapy change [Unknown]
  - Overdose [Unknown]

NARRATIVE: CASE EVENT DATE: 20190109
